FAERS Safety Report 11789875 (Version 1)
Quarter: 2015Q4

REPORT INFORMATION
  Report Type: Spontaneous
  Country: US (occurrence: None)
  Receive Date: 20151130
  Receipt Date: 20151130
  Transmission Date: 20160305
  Serious: Yes (Hospitalization)
  Sender: FDA-Public Use
  Company Number: None

PATIENT
  Age: 84 Year
  Sex: Male

DRUGS (1)
  1. WARFARIN [Suspect]
     Active Substance: WARFARIN
     Indication: ARTERIAL THROMBOSIS
     Dates: start: 20150420, end: 20151117

REACTIONS (1)
  - Arteriovenous graft site haemorrhage [None]

NARRATIVE: CASE EVENT DATE: 20151117
